FAERS Safety Report 6993911-4 (Version None)
Quarter: 2010Q3

REPORT INFORMATION
  Report Type: 
  Country: None (occurrence: None)
  Receive Date: 20100917
  Receipt Date: 20091009
  Transmission Date: 20110219
  Serious: No
  Sender: FDA-Public Use
  Company Number: US-ASTRAZENECA-2009SE19221

PATIENT
  Age: 48 Year
  Sex: Male

DRUGS (4)
  1. SEROQUEL [Suspect]
     Dosage: 100-200 MG
     Route: 048
  2. LEXAPRO [Concomitant]
  3. ZYPREXA [Concomitant]
  4. XANEX [Concomitant]

REACTIONS (1)
  - ENURESIS [None]
